FAERS Safety Report 21073619 (Version 1)
Quarter: 2022Q3

REPORT INFORMATION
  Report Type: Spontaneous
  Country: BR (occurrence: BR)
  Receive Date: 20220713
  Receipt Date: 20220713
  Transmission Date: 20221027
  Serious: Yes (Hospitalization)
  Sender: FDA-Public Use
  Company Number: BR-NOVOPROD-935779

PATIENT
  Age: 85 Year
  Sex: Male
  Weight: 70 kg

DRUGS (1)
  1. INSULIN HUMAN [Suspect]
     Active Substance: INSULIN HUMAN
     Indication: Diabetes mellitus
     Dosage: 70 IU, QD (40 UNITS BREAKFAST AND 30 UNITS BEFORE DINNER)
     Route: 058
     Dates: start: 20220216, end: 20220221

REACTIONS (3)
  - Cerebrovascular accident [Unknown]
  - Pruritus [Recovered/Resolved]
  - Urticaria [Recovered/Resolved]

NARRATIVE: CASE EVENT DATE: 20220216
